FAERS Safety Report 4878192-X (Version None)
Quarter: 2005Q4

REPORT INFORMATION
  Report Type: 
  Country: None (occurrence: None)
  Receive Date: 20051209
  Receipt Date: 20050829
  Transmission Date: 20060501
  Serious: Yes (Hospitalization, Other)
  Sender: FDA-Public Use
  Company Number: USA-2004-0014917

PATIENT
  Age: 44 Year
  Sex: Male
  Weight: 104.3 kg

DRUGS (14)
  1. OXYCONTIN [Suspect]
     Indication: PAIN
     Dosage: 40 MG, BID, ORAL
     Route: 048
  2. VICOPROFEN [Concomitant]
  3. CYCLOBENZAPRINE HCL [Concomitant]
  4. PEPCID [Concomitant]
  5. PAXIL [Concomitant]
  6. VALIUM [Concomitant]
  7. TEGRETOL [Concomitant]
  8. DARVOCET-N 50 [Concomitant]
  9. FLEXERIL [Concomitant]
  10. TEQUIN [Concomitant]
  11. RANITIDINE [Concomitant]
  12. IBUPROFEN [Concomitant]
  13. TYLENOL (CAPLET) [Concomitant]
  14. PHENERGAN [Concomitant]

REACTIONS (38)
  - ABDOMINAL PAIN [None]
  - AGITATION [None]
  - ANXIETY [None]
  - ARTHRALGIA [None]
  - ASTHENIA [None]
  - CHEST PAIN [None]
  - CONTUSION [None]
  - DELUSIONAL DISORDER, UNSPECIFIED TYPE [None]
  - DEPRESSION [None]
  - DERMATITIS CONTACT [None]
  - DIARRHOEA [None]
  - DRUG DEPENDENCE [None]
  - DRUG WITHDRAWAL SYNDROME [None]
  - DYSPEPSIA [None]
  - FACIAL PAIN [None]
  - FALL [None]
  - GASTROOESOPHAGEAL REFLUX DISEASE [None]
  - HYPOAESTHESIA [None]
  - INADEQUATE ANALGESIA [None]
  - INSOMNIA [None]
  - MUCOUS MEMBRANE DISORDER [None]
  - MUSCLE STRAIN [None]
  - NAUSEA [None]
  - NECK PAIN [None]
  - NERVOUSNESS [None]
  - OBSESSIVE-COMPULSIVE DISORDER [None]
  - PAIN [None]
  - PAIN IN EXTREMITY [None]
  - PARANOIA [None]
  - PULMONARY CONGESTION [None]
  - RESTLESSNESS [None]
  - RETCHING [None]
  - SCIATICA [None]
  - SINUS CONGESTION [None]
  - SINUSITIS [None]
  - TONGUE DISCOLOURATION [None]
  - VOMITING [None]
  - WEIGHT DECREASED [None]
